FAERS Safety Report 18055023 (Version 2)
Quarter: 2021Q3

REPORT INFORMATION
  Report Type: Spontaneous
  Country: US (occurrence: US)
  Receive Date: 20200722
  Receipt Date: 20210903
  Transmission Date: 20211014
  Serious: Yes (Death, Other)
  Sender: FDA-Public Use
  Company Number: US-MYLANLABS-2020M1065396

PATIENT
  Age: 78 Year
  Sex: Male

DRUGS (1)
  1. VALSARTAN TABLETS, USP [Suspect]
     Active Substance: VALSARTAN
     Indication: HYPERTENSION
     Dosage: 80 MILLIGRAM
     Dates: start: 20150226, end: 20170109

REACTIONS (2)
  - Hepatic cancer [Unknown]
  - Gastric cancer stage IV [Fatal]

NARRATIVE: CASE EVENT DATE: 20181126
